FAERS Safety Report 5631452-7 (Version None)
Quarter: 2008Q1

REPORT INFORMATION
  Report Type: 
  Country: None (occurrence: None)
  Receive Date: 20080219
  Receipt Date: 20080215
  Transmission Date: 20080703
  Serious: Yes (Other)
  Sender: FDA-Public Use
  Company Number: SE-ALLERGAN-0714071US

PATIENT
  Age: 48 Year
  Sex: Male

DRUGS (1)
  1. DYSPORT [Suspect]
     Indication: NEUROGENIC BLADDER
     Dosage: 500 UNITS, SINGLE
     Route: 030
     Dates: start: 20060501, end: 20060501

REACTIONS (1)
  - MUSCULAR WEAKNESS [None]
